FAERS Safety Report 4840852-4 (Version None)
Quarter: 2005Q4

REPORT INFORMATION
  Report Type: 
  Country: None (occurrence: None)
  Receive Date: 20051130
  Receipt Date: 20050909
  Transmission Date: 20060501
  Serious: No
  Sender: FDA-Public Use
  Company Number: US-BRISTOL-MYERS SQUIBB COMPANY-13105382

PATIENT
  Age: 52 Year
  Sex: Female
  Weight: 54 kg

DRUGS (2)
  1. AVALIDE [Suspect]
     Indication: HYPERTENSION
  2. CENESTIN [Concomitant]

REACTIONS (4)
  - DYSGEUSIA [None]
  - FEELING ABNORMAL [None]
  - HEADACHE [None]
  - PRURITUS [None]
